FAERS Safety Report 6974538-7 (Version None)
Quarter: 2010Q3

REPORT INFORMATION
  Report Type: 
  Country: None (occurrence: None)
  Receive Date: 20100909
  Receipt Date: 20090302
  Transmission Date: 20110219
  Serious: No
  Sender: FDA-Public Use
  Company Number: US-WYE-H06632108

PATIENT
  Sex: Female
  Weight: 65.83 kg

DRUGS (5)
  1. PRISTIQ [Suspect]
     Indication: DEPRESSION
     Route: 048
     Dates: start: 20081027
  2. IBUPROFEN [Concomitant]
  3. ESTROGENS [Concomitant]
  4. TRAZODONE HCL [Concomitant]
  5. TRAMADOL HCL [Concomitant]

REACTIONS (4)
  - ALOPECIA [None]
  - FATIGUE [None]
  - MIDDLE INSOMNIA [None]
  - POOR QUALITY SLEEP [None]
